FAERS Safety Report 16008901 (Version 1)
Quarter: 2019Q1

REPORT INFORMATION
  Report Type: Spontaneous
  Country: US (occurrence: US)
  Receive Date: 20190226
  Receipt Date: 20190226
  Transmission Date: 20190418
  Serious: No
  Sender: FDA-Public Use
  Company Number: US-ACTELION-A-NJ2019-185375

PATIENT
  Sex: Female

DRUGS (15)
  1. TRACLEER [Suspect]
     Active Substance: BOSENTAN
     Dosage: 125 MG, UNK
     Route: 048
  2. TRACLEER [Suspect]
     Active Substance: BOSENTAN
     Indication: PULMONARY ARTERIAL HYPERTENSION
     Dosage: 125 MG, QOD
     Route: 048
  3. MOVANTIK [Concomitant]
     Active Substance: NALOXEGOL OXALATE
  4. LEVETIRACETAM. [Concomitant]
     Active Substance: LEVETIRACETAM
  5. WARFARIN [Concomitant]
     Active Substance: WARFARIN
  6. GABAPENTIN. [Concomitant]
     Active Substance: GABAPENTIN
  7. OXYCODONE HYDROCHLORIDE. [Concomitant]
     Active Substance: OXYCODONE HYDROCHLORIDE
  8. LIPITOR [Concomitant]
     Active Substance: ATORVASTATIN CALCIUM
     Dosage: 20 MG, UNK
  9. SULFASALAZINE. [Concomitant]
     Active Substance: SULFASALAZINE
  10. ELIQUIS [Concomitant]
     Active Substance: APIXABAN
  11. MORPHINE SULFATE. [Concomitant]
     Active Substance: MORPHINE SULFATE
  12. CARISOPRODOL. [Concomitant]
     Active Substance: CARISOPRODOL
  13. LIDOCAINE AND PRILOCAINE [Concomitant]
     Active Substance: LIDOCAINE\PRILOCAINE
  14. METHYLPREDNISOLONE. [Concomitant]
     Active Substance: METHYLPREDNISOLONE
  15. FOLIC ACID. [Concomitant]
     Active Substance: FOLIC ACID

REACTIONS (2)
  - Bronchitis [Unknown]
  - Treatment noncompliance [Recovered/Resolved]
